FAERS Safety Report 9755275 (Version 1)
Quarter: 2013Q4

REPORT INFORMATION
  Report Type: Spontaneous
  Country: US (occurrence: US)
  Receive Date: 20131213
  Receipt Date: 20131213
  Transmission Date: 20140711
  Serious: No
  Sender: FDA-Public Use
  Company Number: US-GLAXOSMITHKLINE-A1015246A

PATIENT
  Age: 32 Year
  Sex: Female

DRUGS (2)
  1. TARGET NTS CLEAR 21 MG [Suspect]
     Indication: EX-TOBACCO USER
  2. EQUATE NTS, CLEAR [Suspect]
     Indication: EX-TOBACCO USER

REACTIONS (3)
  - Hypersensitivity [Not Recovered/Not Resolved]
  - Application site erythema [Not Recovered/Not Resolved]
  - Application site pain [Not Recovered/Not Resolved]
